FAERS Safety Report 23984050 (Version 4)
Quarter: 2024Q4

REPORT INFORMATION
  Report Type: Spontaneous
  Country: CA (occurrence: CA)
  Receive Date: 20240618
  Receipt Date: 20241111
  Transmission Date: 20250114
  Serious: Yes (Other)
  Sender: CELLTRION
  Company Number: CA-PFIZER INC-202400044411

PATIENT

DRUGS (13)
  1. INFLECTRA [Suspect]
     Active Substance: INFLIXIMAB-DYYB
     Indication: Psoriatic arthropathy
     Dosage: 600 MG, Q 0, 2, 6, THEN 8 WEEKS
     Route: 042
     Dates: start: 20210419, end: 20210925
  2. INFLECTRA [Suspect]
     Active Substance: INFLIXIMAB-DYYB
     Dosage: 600 MG, EVERY 6 WEEKS
     Route: 042
     Dates: start: 20211106, end: 20220224
  3. INFLECTRA [Suspect]
     Active Substance: INFLIXIMAB-DYYB
     Dosage: 650 MG, EVERY 6 WEEKS
     Route: 042
     Dates: start: 20220405, end: 20220615
  4. INFLECTRA [Suspect]
     Active Substance: INFLIXIMAB-DYYB
     Dosage: 600 MG, EVERY 6 WEEKS
     Route: 042
     Dates: start: 20220825, end: 20221118
  5. INFLECTRA [Suspect]
     Active Substance: INFLIXIMAB-DYYB
     Dosage: 700 MG, EVERY 5 WEEKS
     Route: 042
     Dates: start: 20221230, end: 20230310
  6. INFLECTRA [Suspect]
     Active Substance: INFLIXIMAB-DYYB
     Dosage: 1000 MG (7.5 MG/KG), EVERY 5 WEEKS
     Route: 042
     Dates: start: 20230414, end: 20230623
  7. INFLECTRA [Suspect]
     Active Substance: INFLIXIMAB-DYYB
     Dosage: 1000 MG, EVERY 4 WEEKS
     Route: 042
     Dates: start: 20230825
  8. INFLECTRA [Suspect]
     Active Substance: INFLIXIMAB-DYYB
     Dosage: 1000 MG, EVERY 4 WEEKS
     Route: 042
     Dates: start: 20231215
  9. INFLECTRA [Suspect]
     Active Substance: INFLIXIMAB-DYYB
     Dosage: 1000 MG, AFTER 11 WEEKS (PRESCRIBED EVERY 4 WEEKS)
     Route: 042
     Dates: start: 20240304
  10. INFLECTRA [Suspect]
     Active Substance: INFLIXIMAB-DYYB
     Dosage: 1000 MG, AFTER 8 WEEKS AND 2 DAYS (PRESCRIBED EVERY 4 WEEKS)
     Route: 042
     Dates: start: 20240501, end: 20240501
  11. INFLECTRA [Suspect]
     Active Substance: INFLIXIMAB-DYYB
     Dosage: 1000 MG, AFTER 7 WEEKS AND 6 DAYS (PRESCRIBED EVERY 4 WEEKS)
     Route: 042
     Dates: start: 20240628
  12. INFLECTRA [Suspect]
     Active Substance: INFLIXIMAB-DYYB
     Dosage: 1000 MG, EVERY 4 WEEKS
     Route: 042
     Dates: start: 20240823
  13. ALLOPURINOL [Concomitant]
     Active Substance: ALLOPURINOL
     Dosage: UNK

REACTIONS (5)
  - Jaw operation [Unknown]
  - Illness [Recovering/Resolving]
  - Feeling abnormal [Unknown]
  - Off label use [Unknown]
  - Inappropriate schedule of product administration [Unknown]

NARRATIVE: CASE EVENT DATE: 20211106
